FAERS Safety Report 7466186-X (Version None)
Quarter: 2011Q2

REPORT INFORMATION
  Report Type: 
  Country: None (occurrence: None)
  Receive Date: 20110509
  Receipt Date: 20110425
  Transmission Date: 20111010
  Serious: Yes (Other)
  Sender: FDA-Public Use
  Company Number: US-ELI_LILLY_AND_COMPANY-US201104007806

PATIENT
  Age: 59 Year
  Sex: Female
  Weight: 77.098 kg

DRUGS (11)
  1. EFFEXOR [Concomitant]
     Dosage: 75 MG, QD
  2. ULTRACET [Concomitant]
     Indication: PAIN
     Dosage: UNK
  3. EFFEXOR [Concomitant]
     Indication: DEPRESSION
     Dosage: UNK UNK, UNKNOWN
  4. PROZAC [Suspect]
     Indication: DEPRESSION
     Dosage: UNK
     Dates: start: 20100101, end: 20100101
  5. DARVOCET [Concomitant]
     Indication: PAIN
     Dosage: UNK
  6. LEVOXYL [Concomitant]
     Indication: HYPOTHYROIDISM
     Dosage: UNK
  7. IRON [Concomitant]
     Dosage: UNK
  8. CELEBREX [Concomitant]
     Indication: JOINT ARTHROPLASTY
     Dosage: 200 MG, QD
     Route: 048
  9. RITALIN [Concomitant]
     Indication: ATTENTION DEFICIT/HYPERACTIVITY DISORDER
     Dosage: UNK
  10. MULTI-VITAMIN [Concomitant]
     Dosage: UNK
  11. EFFEXOR [Concomitant]
     Dosage: 225 MG, QD

REACTIONS (4)
  - ACTIVITIES OF DAILY LIVING IMPAIRED [None]
  - DRUG INEFFECTIVE [None]
  - KNEE ARTHROPLASTY [None]
  - RED BLOOD CELL COUNT DECREASED [None]
